FAERS Safety Report 20964696 (Version 1)
Quarter: 2022Q2

REPORT INFORMATION
  Report Type: Spontaneous
  Country: JP (occurrence: JP)
  Receive Date: 20220615
  Receipt Date: 20220615
  Transmission Date: 20220721
  Serious: Yes (Other)
  Sender: FDA-Public Use
  Company Number: JP-NOVARTISPH-NVSJ2022JP092181

PATIENT
  Sex: Female

DRUGS (1)
  1. HYDROCHLOROTHIAZIDE\VALSARTAN [Suspect]
     Active Substance: HYDROCHLOROTHIAZIDE\VALSARTAN
     Indication: Product used for unknown indication
     Dosage: 1DF: VALSARTAN 80 MG/HYDROCHLOROTHIAZIDE 12.5 MG
     Route: 048

REACTIONS (3)
  - Blood pressure increased [Unknown]
  - Migraine [Unknown]
  - Dizziness [Unknown]
